FAERS Safety Report 14395146 (Version 1)
Quarter: 2018Q1

REPORT INFORMATION
  Report Type: Spontaneous
  Country: US (occurrence: US)
  Receive Date: 20180116
  Receipt Date: 20180116
  Transmission Date: 20180509
  Serious: No
  Sender: FDA-Public Use
  Company Number: US-ALLERGAN-1702480US

PATIENT
  Age: 23 Year
  Sex: Female

DRUGS (1)
  1. BOTOX [Suspect]
     Active Substance: ONABOTULINUMTOXINA
     Indication: MIGRAINE
     Dosage: 155 UNITS, SINGLE
     Route: 030
     Dates: start: 20170117, end: 20170117

REACTIONS (5)
  - Muscular weakness [Recovered/Resolved]
  - Headache [Unknown]
  - Neck pain [Unknown]
  - Product quality issue [Unknown]
  - Hypoaesthesia [Unknown]
